FAERS Safety Report 22531552 (Version 1)
Quarter: 2023Q2

REPORT INFORMATION
  Report Type: Spontaneous
  Country: US (occurrence: US)
  Receive Date: 20230607
  Receipt Date: 20230607
  Transmission Date: 20230722
  Serious: No
  Sender: FDA-Public Use
  Company Number: US-TAKEDA-2023TUS055895

PATIENT
  Sex: Male

DRUGS (4)
  1. ADDERALL XR [Suspect]
     Active Substance: AMPHETAMINE ASPARTATE\AMPHETAMINE SULFATE\DEXTROAMPHETAMINE SACCHARATE\DEXTROAMPHETAMINE SULFATE
     Indication: Attention deficit hyperactivity disorder
     Dosage: 10 MILLIGRAM, QD
     Route: 065
     Dates: start: 202301
  2. BACLOFEN [Concomitant]
     Active Substance: BACLOFEN
     Indication: Spinal disorder
     Dosage: UNK
     Route: 065
  3. GABAPENTIN [Concomitant]
     Active Substance: GABAPENTIN
     Indication: Spinal disorder
     Dosage: UNK
     Route: 065
  4. CELEBREX [Concomitant]
     Active Substance: CELECOXIB
     Indication: Spinal disorder
     Dosage: UNK
     Route: 065

REACTIONS (4)
  - Arthritis [Unknown]
  - Arthralgia [Unknown]
  - Paraesthesia [Unknown]
  - Drug ineffective [Unknown]
